FAERS Safety Report 4467728-9 (Version None)
Quarter: 2004Q4

REPORT INFORMATION
  Report Type: 
  Country: None (occurrence: None)
  Receive Date: 20041004
  Receipt Date: 20041004
  Transmission Date: 20050328
  Serious: Yes (Life-Threatening, Hospitalization)
  Sender: FDA-Public Use
  Company Number: None

PATIENT
  Age: 39 Year
  Sex: Male
  Weight: 99.7913 kg

DRUGS (1)
  1. CELEBREX [Suspect]
     Indication: BACK PAIN
     Dosage: 200 MG TWICE DAILY ORAL
     Route: 048
     Dates: start: 20030419, end: 20030701

REACTIONS (4)
  - CARDIAC DISORDER [None]
  - CHEST PAIN [None]
  - PAIN IN EXTREMITY [None]
  - TROPONIN INCREASED [None]
